FAERS Safety Report 8176601-4 (Version None)
Quarter: 2012Q1

REPORT INFORMATION
  Report Type: 
  Country: None (occurrence: None)
  Receive Date: 20120301
  Receipt Date: 20120222
  Transmission Date: 20120608
  Serious: Yes (Hospitalization, Other)
  Sender: FDA-Public Use
  Company Number: GB-CUBIST-2012S1000218

PATIENT
  Age: 51 Year
  Sex: Female

DRUGS (16)
  1. CUBICIN [Suspect]
     Indication: NEUTROPENIA
     Route: 042
     Dates: start: 20120117, end: 20120203
  2. AMILORIDE HYDROCHLORIDE [Suspect]
     Indication: PRODUCT USED FOR UNKNOWN INDICATION
     Dosage: DOSE UNIT:U UNKNOWN
     Route: 065
     Dates: start: 20120126
  3. CLINDAMYCIN [Concomitant]
     Indication: PRODUCT USED FOR UNKNOWN INDICATION
     Dosage: DOSE UNIT:U UNKNOWN
     Route: 065
  4. AMPHOTERICIN B [Concomitant]
     Indication: PRODUCT USED FOR UNKNOWN INDICATION
     Dosage: DOSE UNIT:U UNKNOWN
     Route: 065
  5. MEROPENEM [Concomitant]
     Indication: PRODUCT USED FOR UNKNOWN INDICATION
     Dosage: DOSE UNIT:U UNKNOWN
     Route: 065
  6. CYTARABINE [Concomitant]
     Indication: PRODUCT USED FOR UNKNOWN INDICATION
     Dosage: DOSE UNIT:U UNKNOWN
     Route: 065
  7. DOMPERIDONE [Concomitant]
     Indication: PRODUCT USED FOR UNKNOWN INDICATION
     Dosage: DOSE UNIT:U UNKNOWN
     Route: 065
  8. METFORMIN HCL [Concomitant]
     Indication: PRODUCT USED FOR UNKNOWN INDICATION
     Dosage: DOSE UNIT:U UNKNOWN
     Route: 065
  9. OMEPRAZOLE [Concomitant]
     Indication: PRODUCT USED FOR UNKNOWN INDICATION
     Dosage: DOSE UNIT:U UNKNOWN
     Route: 065
  10. ACYCLOVIR [Concomitant]
     Indication: PRODUCT USED FOR UNKNOWN INDICATION
     Dosage: DOSE UNIT:U UNKNOWN
     Route: 065
  11. CUBICIN [Suspect]
     Indication: PERIORBITAL CELLULITIS
     Route: 042
     Dates: start: 20120117, end: 20120203
  12. FUROSEMIDE [Suspect]
     Indication: PRODUCT USED FOR UNKNOWN INDICATION
     Dosage: DOSE UNIT:U UNKNOWN
     Route: 065
  13. FLUCLOXACILLIN [Concomitant]
     Indication: PRODUCT USED FOR UNKNOWN INDICATION
     Dosage: DOSE UNIT:U UNKNOWN
     Route: 065
  14. DAUNORUBICIN HCL [Concomitant]
     Indication: PRODUCT USED FOR UNKNOWN INDICATION
     Dosage: DOSE UNIT:U UNKNOWN
     Route: 065
  15. ITRACONAZOLE [Concomitant]
     Indication: PRODUCT USED FOR UNKNOWN INDICATION
     Dosage: DOSE UNIT:U UNKNOWN
     Route: 065
  16. RIFAMPICIN [Concomitant]
     Indication: PRODUCT USED FOR UNKNOWN INDICATION
     Dosage: DOSE UNIT:U UNKNOWN
     Route: 065

REACTIONS (3)
  - HYPONATRAEMIA [None]
  - HYPOKALAEMIA [None]
  - HYPERKALAEMIA [None]
